FAERS Safety Report 23380563 (Version 1)
Quarter: 2024Q1

REPORT INFORMATION
  Report Type: Spontaneous
  Country: CN (occurrence: CN)
  Receive Date: 20240109
  Receipt Date: 20240109
  Transmission Date: 20240410
  Serious: Yes (Life-Threatening, Hospitalization, Other)
  Sender: FDA-Public Use
  Company Number: CN-RISINGPHARMA-CN-2023RISLIT00199

PATIENT
  Age: 64 Year
  Sex: Male

DRUGS (4)
  1. MORPHINE SULFATE [Suspect]
     Active Substance: MORPHINE SULFATE
     Indication: Insomnia
     Dosage: 30-60 MG EVERY 12 HOURS
     Route: 048
     Dates: start: 202110
  2. MORPHINE SULFATE [Suspect]
     Active Substance: MORPHINE SULFATE
     Indication: Cancer pain
  3. ESTAZOLAM [Suspect]
     Active Substance: ESTAZOLAM
     Indication: Cancer pain
     Route: 048
     Dates: start: 202110
  4. ESTAZOLAM [Suspect]
     Active Substance: ESTAZOLAM
     Indication: Insomnia

REACTIONS (5)
  - Respiratory failure [Recovering/Resolving]
  - Coma [Recovered/Resolved]
  - Toxicity to various agents [Recovering/Resolving]
  - Drug interaction [Unknown]
  - Product use in unapproved indication [Unknown]
